FAERS Safety Report 4447004-0 (Version None)
Quarter: 2004Q3

REPORT INFORMATION
  Report Type: 
  Country: None (occurrence: None)
  Receive Date: 20040812
  Receipt Date: 20040628
  Transmission Date: 20050211
  Serious: No
  Sender: FDA-Public Use
  Company Number: USA040464287

PATIENT
  Age: 57 Year
  Sex: Male

DRUGS (5)
  1. CIALIS [Suspect]
     Indication: ERECTILE DYSFUNCTION
     Dosage: 20 MG
  2. MORPHINE [Concomitant]
  3. PERCOCET [Concomitant]
  4. SEROQUEL [Concomitant]
  5. ANTIDEPRESSANTS [Concomitant]

REACTIONS (3)
  - DIZZINESS [None]
  - HYPOTENSION [None]
  - VISION BLURRED [None]
